FAERS Safety Report 7792927-8 (Version None)
Quarter: 2011Q3

REPORT INFORMATION
  Report Type: 
  Country: None (occurrence: None)
  Receive Date: 20110930
  Receipt Date: 20110930
  Transmission Date: 20111222
  Serious: Yes (Hospitalization)
  Sender: FDA-Public Use
  Company Number: None

PATIENT
  Age: 52 Year
  Sex: Female
  Weight: 130.1823 kg

DRUGS (1)
  1. IMURAN [Suspect]
     Indication: SLE ARTHRITIS
     Dosage: 50MG  2 DAY BY MOUTH
     Route: 048
     Dates: start: 20110621

REACTIONS (3)
  - DIARRHOEA [None]
  - VOMITING [None]
  - PANCREATITIS ACUTE [None]
